FAERS Safety Report 25639848 (Version 1)
Quarter: 2025Q3

REPORT INFORMATION
  Report Type: Spontaneous
  Country: US (occurrence: US)
  Receive Date: 20250804
  Receipt Date: 20250804
  Transmission Date: 20251021
  Serious: Yes (Other)
  Sender: BAUSCH AND LOMB
  Company Number: US-BAUSCHBL-2025BNL013205

PATIENT
  Age: 77 Year
  Sex: Female

DRUGS (2)
  1. MIEBO [Suspect]
     Active Substance: PERFLUOROHEXYLOCTANE
     Indication: Progressive external ophthalmoplegia
     Route: 047
  2. MIEBO [Suspect]
     Active Substance: PERFLUOROHEXYLOCTANE
     Indication: Product use in unapproved indication

REACTIONS (14)
  - Blepharoplasty [Unknown]
  - Concussion [Unknown]
  - Stress [Unknown]
  - Anxiety [Unknown]
  - Skin burning sensation [Unknown]
  - Eye irritation [Unknown]
  - Vision blurred [Unknown]
  - Product delivery mechanism issue [Unknown]
  - Exposure via skin contact [Unknown]
  - Patient dissatisfaction with treatment [Unknown]
  - Accidental exposure to product [Unknown]
  - Inability to afford medication [Unknown]
  - Product use complaint [Unknown]
  - Product use in unapproved indication [Unknown]
